FAERS Safety Report 8595355-0 (Version None)
Quarter: 2012Q3

REPORT INFORMATION
  Report Type: 
  Country: None (occurrence: None)
  Receive Date: 20120807
  Receipt Date: 20120807
  Transmission Date: 20120928
  Serious: Yes (Hospitalization)
  Sender: FDA-Public Use
  Company Number: None

PATIENT
  Sex: Female
  Weight: 48.4 kg

DRUGS (1)
  1. ERBITUX [Suspect]
     Dosage: 350 MG

REACTIONS (2)
  - APHAGIA [None]
  - MUCOSAL INFLAMMATION [None]
